FAERS Safety Report 13390678 (Version 1)
Quarter: 2017Q1

REPORT INFORMATION
  Report Type: Spontaneous
  Country: JP (occurrence: JP)
  Receive Date: 20170331
  Receipt Date: 20170331
  Transmission Date: 20170429
  Serious: Yes (Life-Threatening, Hospitalization)
  Sender: FDA-Public Use
  Company Number: PHJP2017JP010193

PATIENT
  Age: 53 Year
  Sex: Male

DRUGS (1)
  1. CARBAMAZEPINE. [Suspect]
     Active Substance: CARBAMAZEPINE
     Indication: EPILEPSY
     Dosage: UNK
     Route: 048

REACTIONS (9)
  - Dizziness [Unknown]
  - Tonic convulsion [Unknown]
  - Pulseless electrical activity [Unknown]
  - Syncope [Unknown]
  - Agonal rhythm [Unknown]
  - Pulmonary artery thrombosis [Unknown]
  - Hypoxia [Unknown]
  - Cardiac arrest [Unknown]
  - Embolism venous [Unknown]
